FAERS Safety Report 7550910-1 (Version None)
Quarter: 2011Q2

REPORT INFORMATION
  Report Type: 
  Country: None (occurrence: None)
  Receive Date: 20110609
  Receipt Date: 20110518
  Transmission Date: 20111010
  Serious: Yes (Other)
  Sender: FDA-Public Use
  Company Number: 20110430

PATIENT
  Age: 11 Year
  Sex: Male

DRUGS (5)
  1. NICARDIPINE HCL [Suspect]
     Dosage: 20 MG THREE TIMES DAILY ORAL
     Route: 048
  2. PREDNISONE [Concomitant]
  3. MYCOPHENOLATE MEFETIL [Concomitant]
  4. NICARDIPINE HYDROCHLORIDE [Suspect]
     Indication: HYPERTENSION
     Dosage: 3 UG/KG/MIN INTRAVENOUS DRIP
     Route: 041
  5. TACROLIMUS [Suspect]
     Dosage: VARIED

REACTIONS (7)
  - PROTEINURIA [None]
  - BLOOD CREATININE INCREASED [None]
  - KIDNEY TRANSPLANT REJECTION [None]
  - DRUG INTERACTION [None]
  - IMMUNOSUPPRESSANT DRUG LEVEL INCREASED [None]
  - IMMUNOSUPPRESSANT DRUG LEVEL DECREASED [None]
  - BLOOD PRESSURE INADEQUATELY CONTROLLED [None]
